FAERS Safety Report 6829990-4 (Version None)
Quarter: 2010Q3

REPORT INFORMATION
  Report Type: 
  Country: None (occurrence: None)
  Receive Date: 20100711
  Receipt Date: 20100503
  Transmission Date: 20110219
  Serious: No
  Sender: FDA-Public Use
  Company Number: US-ALLERGAN-1005318US

PATIENT
  Age: 62 Year
  Sex: Female

DRUGS (3)
  1. LATISSE [Suspect]
     Indication: GROWTH OF EYELASHES
     Dosage: 1 GTT, TINY BIT MORE IF NEEDED
     Route: 061
  2. LUMIGAN [Concomitant]
     Indication: NORMAL TENSION GLAUCOMA
     Dosage: UNK
     Route: 047
     Dates: start: 20100201
  3. XALATAN [Concomitant]
     Indication: NORMAL TENSION GLAUCOMA

REACTIONS (5)
  - APPLICATION SITE RASH [None]
  - DRUG ADMINISTERED AT INAPPROPRIATE SITE [None]
  - DRUG INEFFECTIVE [None]
  - INAPPROPRIATE SCHEDULE OF DRUG ADMINISTRATION [None]
  - INCORRECT DOSE ADMINISTERED [None]
